FAERS Safety Report 23657646 (Version 4)
Quarter: 2025Q4

REPORT INFORMATION
  Report Type: Report from Study
  Country: US (occurrence: US)
  Receive Date: 20240321
  Receipt Date: 20251222
  Transmission Date: 20260117
  Serious: Yes (Other)
  Sender: PFIZER
  Company Number: US-PFIZER INC-202400067775

PATIENT
  Age: 38 Year
  Sex: Male

DRUGS (1)
  1. BENEFIX [Suspect]
     Active Substance: COAGULATION FACTOR IX RECOMBINANT HUMAN\ISOPROPYL ALCOHOL
     Indication: Haemorrhage
     Dosage: 3,000 UNIT, 100 IU/KG, 8,178 UNITS +/-10% DAILY AS NEEDED
     Route: 042

REACTIONS (1)
  - Haemorrhage [Unknown]
